FAERS Safety Report 8378710-3 (Version None)
Quarter: 2012Q2

REPORT INFORMATION
  Report Type: 
  Country: None (occurrence: None)
  Receive Date: 20120522
  Receipt Date: 20120517
  Transmission Date: 20120825
  Serious: Yes (Hospitalization, Disabling, Other)
  Sender: FDA-Public Use
  Company Number: US-MERCK-1108USA03399

PATIENT
  Age: 67 Year
  Sex: Female
  Weight: 70 kg

DRUGS (4)
  1. FOSAMAX [Suspect]
     Route: 048
     Dates: start: 19970123, end: 20000401
  2. FOSAMAX [Suspect]
     Indication: OSTEOPOROSIS
     Route: 048
     Dates: start: 20010101, end: 20060101
  3. EVISTA [Concomitant]
     Indication: OSTEOPOROSIS
     Route: 065
     Dates: start: 20000101, end: 20010101
  4. FOSAMAX [Suspect]
     Route: 048
     Dates: start: 20090902

REACTIONS (84)
  - CARDIOVASCULAR DISORDER [None]
  - CELLULITIS [None]
  - CONJUNCTIVITIS ALLERGIC [None]
  - PNEUMOTHORAX [None]
  - FALL [None]
  - PAIN IN EXTREMITY [None]
  - LIMB ASYMMETRY [None]
  - ILIOTIBIAL BAND SYNDROME [None]
  - CUTIS LAXA [None]
  - BREAST MASS [None]
  - HIGH TURNOVER OSTEOPATHY [None]
  - CHRONIC OBSTRUCTIVE PULMONARY DISEASE [None]
  - EUSTACHIAN TUBE DYSFUNCTION [None]
  - ENTHESOPATHY [None]
  - OTITIS MEDIA [None]
  - MENISCUS LESION [None]
  - OROPHARYNGEAL PAIN [None]
  - SINUS BRADYCARDIA [None]
  - TYPE 1 DIABETES MELLITUS [None]
  - ONYCHOMYCOSIS [None]
  - IMPAIRED FASTING GLUCOSE [None]
  - EXOSTOSIS [None]
  - DEAFNESS NEUROSENSORY [None]
  - ACNE [None]
  - CONJUNCTIVITIS [None]
  - SEBORRHOEIC KERATOSIS [None]
  - VITAMIN B12 DEFICIENCY [None]
  - ATROPHIC VULVOVAGINITIS [None]
  - URINARY INCONTINENCE [None]
  - RADICULITIS LUMBOSACRAL [None]
  - HYPERTENSION [None]
  - CYSTITIS NONINFECTIVE [None]
  - BONE DISORDER [None]
  - BUNION [None]
  - HYPERKERATOSIS [None]
  - PULMONARY GRANULOMA [None]
  - DEEP VEIN THROMBOSIS [None]
  - ACTINIC KERATOSIS [None]
  - HYPERLIPIDAEMIA [None]
  - URINARY TRACT INFECTION [None]
  - PRESBYOPIA [None]
  - BORDERLINE GLAUCOMA [None]
  - FOOT FRACTURE [None]
  - FIBULA FRACTURE [None]
  - ABSCESS LIMB [None]
  - SMEAR CERVIX ABNORMAL [None]
  - FOOT DEFORMITY [None]
  - ANKLE FRACTURE [None]
  - FIBROMYALGIA [None]
  - MENINGIOMA [None]
  - PERIPHERAL VASCULAR DISORDER [None]
  - IMPAIRED HEALING [None]
  - DIABETIC RETINOPATHY [None]
  - BREAST PAIN [None]
  - LIGAMENT SPRAIN [None]
  - CONTUSION [None]
  - PAIN IN JAW [None]
  - GASTROOESOPHAGEAL REFLUX DISEASE [None]
  - TENDONITIS [None]
  - CATARACT NUCLEAR [None]
  - SCIATICA [None]
  - MUSCULOSKELETAL PAIN [None]
  - RENAL CYST [None]
  - VITREOUS DEGENERATION [None]
  - VULVOVAGINAL PRURITUS [None]
  - PELVIC PAIN [None]
  - ECCHYMOSIS [None]
  - DIZZINESS [None]
  - DEPRESSION [None]
  - NECK PAIN [None]
  - FEMUR FRACTURE [None]
  - CERVICAL DYSPLASIA [None]
  - VERTIGO POSITIONAL [None]
  - CYSTITIS [None]
  - ARTERIOSCLEROSIS CORONARY ARTERY [None]
  - CATARACT [None]
  - OSTEOARTHRITIS [None]
  - SPINAL OSTEOARTHRITIS [None]
  - ARTHRALGIA [None]
  - OTORRHOEA [None]
  - BURSITIS [None]
  - ASTIGMATISM [None]
  - PULMONARY FIBROSIS [None]
  - BACK PAIN [None]
